FAERS Safety Report 4431939-9 (Version None)
Quarter: 2004Q3

REPORT INFORMATION
  Report Type: 
  Country: None (occurrence: None)
  Receive Date: 20040818
  Receipt Date: 20040804
  Transmission Date: 20050211
  Serious: Yes (Other)
  Sender: FDA-Public Use
  Company Number: US_0408104611

PATIENT
  Age: 69 Year
  Sex: Female

DRUGS (4)
  1. HUMATROPE [Suspect]
     Indication: HYPOPITUITARISM
     Dosage: 0.2 MG/1 DAY
     Dates: start: 20040514, end: 20040803
  2. SYNTHROID [Concomitant]
  3. HYDROCORTISONE [Concomitant]
  4. DDAVP [Concomitant]

REACTIONS (1)
  - HYPERHIDROSIS [None]
